FAERS Safety Report 4766074-3 (Version None)
Quarter: 2005Q3

REPORT INFORMATION
  Report Type: 
  Country: None (occurrence: None)
  Receive Date: 20050906
  Receipt Date: 20050824
  Transmission Date: 20060218
  Serious: Yes (Other)
  Sender: FDA-Public Use
  Company Number: 2005119736

PATIENT
  Age: 28 Year
  Sex: Female
  Weight: 89.8122 kg

DRUGS (2)
  1. DEPO-PROVERA SUSPENSION, STERILE (MEDROXYPROGESTERONE ACETATE) [Suspect]
     Indication: CONTRACEPTION
     Dosage: (150 MG)
     Dates: start: 20020701, end: 20020701
  2. DEPO-PROVERA SUSPENSION, STERILE (MEDROXYPROGESTERONE ACETATE) [Suspect]
     Indication: CONTRACEPTION
     Dosage: (150 MG)
     Dates: start: 20050412, end: 20050412

REACTIONS (2)
  - ABORTION [None]
  - PREGNANCY WITH INJECTABLE CONTRACEPTIVE [None]
